FAERS Safety Report 9901758 (Version 2)
Quarter: 2014Q1

REPORT INFORMATION
  Report Type: Spontaneous
  Country: US (occurrence: US)
  Receive Date: 20140217
  Receipt Date: 20140217
  Transmission Date: 20141002
  Serious: No
  Sender: FDA-Public Use
  Company Number: US-GILEAD-2011-0042352

PATIENT
  Sex: Female

DRUGS (3)
  1. LETAIRIS [Suspect]
     Indication: PULMONARY HYPERTENSION
     Route: 048
  2. LETAIRIS [Suspect]
     Indication: SCLERODERMA
     Route: 048
  3. TYVASO [Suspect]
     Dates: start: 201105

REACTIONS (3)
  - Dizziness [Unknown]
  - Nasal congestion [Unknown]
  - Swelling [Unknown]
